FAERS Safety Report 24165852 (Version 1)
Quarter: 2024Q3

REPORT INFORMATION
  Report Type: Report from Study
  Country: US (occurrence: None)
  Receive Date: 20240802
  Receipt Date: 20240802
  Transmission Date: 20241016
  Serious: Yes (Hospitalization)
  Sender: ASTRAZENECA
  Company Number: 2021A737494

PATIENT
  Sex: Female

DRUGS (1)
  1. TAGRISSO [Suspect]
     Active Substance: OSIMERTINIB
     Indication: Lung carcinoma cell type unspecified stage 0
     Route: 048
     Dates: start: 20210730

REACTIONS (5)
  - Myocardial oedema [Unknown]
  - Hyponatraemia [Unknown]
  - Decreased appetite [Unknown]
  - Weight decreased [Unknown]
  - Fatigue [Unknown]
